FAERS Safety Report 9245256 (Version 2)
Quarter: 2013Q2

REPORT INFORMATION
  Report Type: Spontaneous
  Country: US (occurrence: None)
  Receive Date: 20121130
  Receipt Date: 20130130
  Transmission Date: 20140414
  Serious: Yes (Other)
  Sender: FDA-Public Use
  Company Number: US201209007564

PATIENT
  Age: 77 Year
  Sex: Female

DRUGS (11)
  1. BYETTA [Suspect]
     Route: 058
     Dates: start: 20120921, end: 20120924
  2. VICTOZA (LIRAGLUTIDE) [Concomitant]
  3. COUMADIN (WARFARIN SODIUM) [Concomitant]
  4. JANUVIA (SITAGLIPTIN PHOSPHATE) [Concomitant]
  5. LISINOPRIL (LISINOPRIL) [Concomitant]
  6. METFORMIN (METFORMIN) [Concomitant]
  7. TRICOR (FENOFIBRATE) [Concomitant]
  8. COREG CR (CARVEDILOL) [Concomitant]
  9. LASIX (FUROSEMIDE) [Concomitant]
  10. SIMVASTATIN (SIMVASTATIN) [Concomitant]
  11. SPIRONOLACTONE (SPIRONOLACTONE) [Concomitant]

REACTIONS (2)
  - International normalised ratio increased [None]
  - Mouth haemorrhage [None]
